FAERS Safety Report 18870263 (Version 1)
Quarter: 2021Q1

REPORT INFORMATION
  Report Type: Spontaneous
  Country: JO (occurrence: JO)
  Receive Date: 20210210
  Receipt Date: 20210210
  Transmission Date: 20210420
  Serious: Yes (Other)
  Sender: FDA-Public Use
  Company Number: JO-SUN PHARMACEUTICAL INDUSTRIES LTD-2021R1-279773

PATIENT
  Age: 63 Year
  Sex: Male

DRUGS (1)
  1. DOXORUBICIN [Suspect]
     Active Substance: DOXORUBICIN
     Indication: CHEMOTHERAPY
     Dosage: 50 MILLILITER UNK
     Route: 043

REACTIONS (5)
  - Perineal pain [Recovering/Resolving]
  - Dysuria [Recovering/Resolving]
  - Pelvic pain [Recovering/Resolving]
  - Bladder perforation [Recovering/Resolving]
  - Pollakiuria [Recovering/Resolving]
